FAERS Safety Report 5002827-4 (Version None)
Quarter: 2006Q2

REPORT INFORMATION
  Report Type: 
  Country: None (occurrence: None)
  Receive Date: 20060516
  Receipt Date: 20040317
  Transmission Date: 20061013
  Serious: Yes (Hospitalization)
  Sender: FDA-Public Use
  Company Number: 2004AP01746

PATIENT
  Age: 22900 Day
  Sex: Female
  Weight: 75 kg

DRUGS (5)
  1. IRESSA [Suspect]
     Indication: COLORECTAL CANCER
     Route: 048
     Dates: start: 20040209, end: 20040313
  2. FLUOROURACIL [Suspect]
     Indication: COLORECTAL CANCER
     Dosage: BOLUS DOSE
     Route: 042
     Dates: start: 20040209, end: 20040228
  3. FLUOROURACIL [Suspect]
     Route: 042
     Dates: start: 20040209, end: 20040229
  4. OXALIPLATIN [Suspect]
     Indication: COLORECTAL CANCER
     Route: 042
     Dates: start: 20040209, end: 20040227
  5. FOLINIC ACID [Suspect]
     Indication: COLORECTAL CANCER
     Route: 042
     Dates: start: 20040209, end: 20040228

REACTIONS (4)
  - DIARRHOEA [None]
  - DYSPHAGIA [None]
  - ORAL MUCOSAL PETECHIAE [None]
  - VOMITING [None]
